FAERS Safety Report 19550187 (Version 1)
Quarter: 2021Q3

REPORT INFORMATION
  Report Type: Spontaneous
  Country: US (occurrence: US)
  Receive Date: 20210715
  Receipt Date: 20210715
  Transmission Date: 20211014
  Serious: No
  Sender: FDA-Public Use
  Company Number: None

PATIENT
  Age: 84 Year
  Sex: Female
  Weight: 64.71 kg

DRUGS (14)
  1. AMLODIPINE [Concomitant]
     Active Substance: AMLODIPINE BESYLATE
  2. LIDOCAINE?PRILOCAINE [Concomitant]
     Active Substance: LIDOCAINE\PRILOCAINE
  3. ERGOCALCIFEROL. [Concomitant]
     Active Substance: ERGOCALCIFEROL
  4. CARVEDILOL. [Concomitant]
     Active Substance: CARVEDILOL
  5. MAGNESIUM [Concomitant]
     Active Substance: MAGNESIUM
  6. VENCLEXTA [Concomitant]
     Active Substance: VENETOCLAX
  7. CYTARABINE. [Suspect]
     Active Substance: CYTARABINE
     Indication: ACUTE MYELOID LEUKAEMIA
     Dosage: ?          OTHER FREQUENCY:BID 10/21 DAYS;?
     Route: 058
     Dates: start: 20210524
  8. POSACONAZOLE [Concomitant]
     Active Substance: POSACONAZOLE
  9. ACYCLOVIR. [Concomitant]
     Active Substance: ACYCLOVIR
  10. ONDANSETRON [Concomitant]
     Active Substance: ONDANSETRON
  11. ALLOPURINOL. [Concomitant]
     Active Substance: ALLOPURINOL
  12. CIPROFLOXACIN. [Concomitant]
     Active Substance: CIPROFLOXACIN
  13. PROCHLORPERAZINE. [Concomitant]
     Active Substance: PROCHLORPERAZINE
  14. FUROSEMIDE. [Concomitant]
     Active Substance: FUROSEMIDE

REACTIONS (9)
  - Decreased appetite [None]
  - Cognitive disorder [None]
  - Haemoglobin decreased [None]
  - White blood cell count decreased [None]
  - Retching [None]
  - Chromaturia [None]
  - Blood bilirubin increased [None]
  - Asthenia [None]
  - Pneumonia [None]

NARRATIVE: CASE EVENT DATE: 20210605
